FAERS Safety Report 4690962-X (Version None)
Quarter: 2005Q2

REPORT INFORMATION
  Report Type: 
  Country: None (occurrence: None)
  Receive Date: 20050610
  Receipt Date: 20050529
  Transmission Date: 20051028
  Serious: Yes (Other)
  Sender: FDA-Public Use
  Company Number: 2005081815

PATIENT
  Age: 17 Year
  Sex: Female
  Weight: 54.4316 kg

DRUGS (2)
  1. BENADRYL [Suspect]
     Indication: HYPERSENSITIVITY
     Dosage: 2 PILLS TWICE, AN HOUR APART, ORAL
     Route: 048
     Dates: start: 20050527, end: 20050527
  2. SALBUTAMOL (SALBUTAMOL) [Concomitant]

REACTIONS (4)
  - DYSPNOEA [None]
  - LUNG DISORDER [None]
  - PAIN [None]
  - PRODUCTIVE COUGH [None]
